FAERS Safety Report 25545844 (Version 2)
Quarter: 2025Q3

REPORT INFORMATION
  Report Type: Spontaneous
  Country: CA (occurrence: CA)
  Receive Date: 20250712
  Receipt Date: 20250722
  Transmission Date: 20251020
  Serious: Yes (Other)
  Sender: AUROBINDO
  Company Number: CA-AUROBINDO-AUR-APL-2025-035152

PATIENT
  Age: 74 Year
  Sex: Male

DRUGS (9)
  1. METHOTREXATE [Suspect]
     Active Substance: METHOTREXATE
     Indication: VEXAS syndrome
     Route: 065
  2. PREDNISONE [Suspect]
     Active Substance: PREDNISONE
     Indication: VEXAS syndrome
     Route: 065
  3. PREDNISONE [Suspect]
     Active Substance: PREDNISONE
     Dosage: 15 MILLIGRAM, ONCE A DAY
     Route: 065
  4. PREDNISONE [Suspect]
     Active Substance: PREDNISONE
     Dosage: 2 MILLIGRAM, ONCE A DAY
     Route: 065
  5. PREDNISONE [Suspect]
     Active Substance: PREDNISONE
     Dosage: 5 MILLIGRAM, ONCE A DAY
     Route: 065
  6. AZATHIOPRINE [Suspect]
     Active Substance: AZATHIOPRINE
     Indication: VEXAS syndrome
     Route: 065
  7. MYCOPHENOLATE MOFETIL [Suspect]
     Active Substance: MYCOPHENOLATE MOFETIL
     Indication: VEXAS syndrome
     Route: 065
  8. RUXOLITINIB [Suspect]
     Active Substance: RUXOLITINIB
     Indication: VEXAS syndrome
     Route: 065
  9. SARILUMAB [Suspect]
     Active Substance: SARILUMAB
     Indication: VEXAS syndrome
     Route: 065

REACTIONS (1)
  - Drug ineffective [Unknown]
